FAERS Safety Report 11741348 (Version 1)
Quarter: 2015Q4

REPORT INFORMATION
  Report Type: Spontaneous
  Country: US (occurrence: None)
  Receive Date: 20151113
  Receipt Date: 20151113
  Transmission Date: 20160304
  Serious: No
  Sender: FDA-Public Use
  Company Number: None

PATIENT
  Age: 14 Year
  Sex: Female
  Weight: 60 kg

DRUGS (1)
  1. GAMUNEX [Suspect]
     Active Substance: HUMAN IMMUNOGLOBULIN G
     Indication: MYOCARDITIS
     Dosage: 300ML TWICE INTRAVENOUS
     Route: 042
     Dates: start: 20151030, end: 20151031

REACTIONS (3)
  - Hepatitis B [None]
  - Transmission of an infectious agent via product [None]
  - Hepatitis B core antibody positive [None]

NARRATIVE: CASE EVENT DATE: 20151104
